FAERS Safety Report 6876451-2 (Version None)
Quarter: 2010Q2

REPORT INFORMATION
  Report Type: 
  Country: None (occurrence: None)
  Receive Date: 20100610
  Receipt Date: 20100420
  Transmission Date: 20101027
  Serious: No
  Sender: FDA-Public Use
  Company Number: 2010SP022993

PATIENT

DRUGS (1)
  1. SAPHRIS [Suspect]
     Indication: DRUG USE FOR UNKNOWN INDICATION
     Dosage: 10 MG; BID

REACTIONS (4)
  - DYSGEUSIA [None]
  - EUPHORIC MOOD [None]
  - INFLUENZA [None]
  - MALAISE [None]
